FAERS Safety Report 24667761 (Version 2)
Quarter: 2024Q4

REPORT INFORMATION
  Report Type: Report from Study
  Country: ZA (occurrence: ZA)
  Receive Date: 20241127
  Receipt Date: 20241203
  Transmission Date: 20250115
  Serious: Yes (Other)
  Sender: NOVARTIS
  Company Number: ZA-002147023-NVSC2024ZA224658

PATIENT
  Age: 44 Year
  Sex: Male

DRUGS (4)
  1. COSENTYX [Suspect]
     Active Substance: SECUKINUMAB
     Indication: Ankylosing spondylitis
     Dosage: 150 MG
     Route: 058
     Dates: start: 20240222
  2. COSENTYX [Suspect]
     Active Substance: SECUKINUMAB
     Dosage: 300 MG, QMO
     Route: 058
  3. COSENTYX [Suspect]
     Active Substance: SECUKINUMAB
     Dosage: 300 MG, Q4W
     Route: 058
  4. ARCOXIA [Concomitant]
     Active Substance: ETORICOXIB
     Indication: Product used for unknown indication
     Dosage: 90 MG, MANE
     Route: 065
     Dates: start: 202109

REACTIONS (15)
  - C-reactive protein increased [Unknown]
  - Blood creatinine increased [Unknown]
  - General physical health deterioration [Unknown]
  - Dysstasia [Unknown]
  - Gait disturbance [Unknown]
  - Alanine aminotransferase increased [Unknown]
  - Aspartate aminotransferase increased [Unknown]
  - Blood chloride increased [Unknown]
  - B-lymphocyte count increased [Unknown]
  - Monocyte percentage increased [Unknown]
  - Mean platelet volume decreased [Unknown]
  - Platelet count increased [Unknown]
  - Low density lipoprotein increased [Unknown]
  - High density lipoprotein increased [Unknown]
  - White blood cell count abnormal [Unknown]
